FAERS Safety Report 14804145 (Version 1)
Quarter: 2018Q2

REPORT INFORMATION
  Report Type: Spontaneous
  Country: US (occurrence: US)
  Receive Date: 20180425
  Receipt Date: 20180425
  Transmission Date: 20180711
  Serious: No
  Sender: FDA-Public Use
  Company Number: US-PFIZER INC-2018146689

PATIENT
  Age: 17 Month
  Sex: Male

DRUGS (3)
  1. EUCRISA [Suspect]
     Active Substance: CRISABOROLE
     Dosage: UNK, 1X/DAY (ONCE DAILY FOR ONE WEEK)
  2. EUCRISA [Suspect]
     Active Substance: CRISABOROLE
     Dosage: UNK, 2X/DAY (TWICE A DAY FOR ONE WEEK)
  3. EUCRISA [Suspect]
     Active Substance: CRISABOROLE
     Dosage: UNK, ALTERNATE DAY (ONCE EVERY OTHER DAY)

REACTIONS (3)
  - Crying [Unknown]
  - Skin burning sensation [Unknown]
  - Drug administered to patient of inappropriate age [Unknown]
